FAERS Safety Report 5036925-6 (Version None)
Quarter: 2006Q2

REPORT INFORMATION
  Report Type: 
  Country: None (occurrence: None)
  Receive Date: 20060622
  Receipt Date: 20060612
  Transmission Date: 20061013
  Serious: Yes (Hospitalization, Other)
  Sender: FDA-Public Use
  Company Number: HQWYE684024NOV04

PATIENT
  Age: 53 Year
  Sex: Female
  Weight: 70.37 kg

DRUGS (4)
  1. PREMPRO [Suspect]
     Indication: OSTEOPOROSIS
     Dosage: 0.625 MG, ORAL
     Route: 048
     Dates: start: 19990701, end: 20001101
  2. PREMPRO [Suspect]
     Indication: PROPHYLAXIS
     Dosage: 0.625 MG, ORAL
     Route: 048
     Dates: start: 19990701, end: 20001101
  3. PREMARIN [Suspect]
     Indication: MENOPAUSE
     Dosage: ORAL
     Route: 048
     Dates: start: 19900101, end: 19980101
  4. PROVERA [Suspect]
     Indication: MENOPAUSE
     Dates: start: 19900101, end: 19980101

REACTIONS (5)
  - BREAST CANCER FEMALE [None]
  - BREAST CANCER IN SITU [None]
  - DEPRESSION [None]
  - POST PROCEDURAL PULMONARY EMBOLISM [None]
  - VENOUS THROMBOSIS [None]
